FAERS Safety Report 7370461-7 (Version None)
Quarter: 2011Q1

REPORT INFORMATION
  Report Type: 
  Country: None (occurrence: None)
  Receive Date: 20110323
  Receipt Date: 20110308
  Transmission Date: 20110831
  Serious: Yes (Other)
  Sender: FDA-Public Use
  Company Number: PHHY2011US14849

PATIENT
  Sex: Male

DRUGS (3)
  1. MOBIC [Concomitant]
  2. FANAPT [Suspect]
     Dosage: 8 MG, BID
  3. VICODIN [Concomitant]

REACTIONS (1)
  - MYOCARDIAL INFARCTION [None]
